FAERS Safety Report 9630586 (Version 1)
Quarter: 2013Q4

REPORT INFORMATION
  Report Type: Spontaneous
  Country: TR (occurrence: None)
  Receive Date: 20131011
  Receipt Date: 20131011
  Transmission Date: 20140711
  Serious: Yes (Hospitalization)
  Sender: FDA-Public Use
  Company Number: 2013P1019867

PATIENT
  Age: 56 Year
  Sex: Female

DRUGS (1)
  1. PROPYLTHIOURACIL [Suspect]
     Indication: BASEDOW^S DISEASE

REACTIONS (4)
  - Cryoglobulinaemia [None]
  - Vasculitis [None]
  - Antineutrophil cytoplasmic antibody positive [None]
  - Antineutrophil cytoplasmic antibody positive [None]
